FAERS Safety Report 8608262-1 (Version None)
Quarter: 2012Q3

REPORT INFORMATION
  Report Type: 
  Country: None (occurrence: None)
  Receive Date: 20120821
  Receipt Date: 20071125
  Transmission Date: 20120928
  Serious: Yes (Other)
  Sender: FDA-Public Use
  Company Number: CO-PFIZER INC-2012202203

PATIENT
  Age: 57 Year
  Sex: Female

DRUGS (5)
  1. ACCUPRIL [Suspect]
     Indication: HYPERTENSION
     Dosage: 20 MG, 1X/DAY
  2. LIPITOR [Suspect]
     Indication: DYSLIPIDAEMIA
     Dosage: 10 MG, 1X/DAY
  3. OMEPRAZOLE [Concomitant]
     Dosage: 20 MG, 1X/DAY
  4. METFORMIN [Concomitant]
     Dosage: 850 MG, 3X/DAY
  5. GLIBENCLAMIDE [Concomitant]
     Dosage: 5 MG, 1X/DAY

REACTIONS (6)
  - CAROTID ARTERY DISEASE [None]
  - RENAL FAILURE CHRONIC [None]
  - TOBACCO ABUSE [None]
  - ANGIOPATHY [None]
  - CARDIAC MURMUR [None]
  - PROTEINURIA [None]
